FAERS Safety Report 9238844 (Version 1)
Quarter: 2013Q1

REPORT INFORMATION
  Report Type: Spontaneous
  Country: US (occurrence: None)
  Receive Date: 20121107
  Receipt Date: 20121107
  Transmission Date: 20140127
  Serious: No
  Sender: FDA-Public Use
  Company Number: 2012HGS-003835

PATIENT
  Sex: Female
  Weight: 102.06 kg

DRUGS (13)
  1. BENLYSTA [Suspect]
     Indication: SYSTEMIC LUPUS ERYTHEMATOSUS
     Dosage: 1 IN 28  D
     Route: 041
     Dates: start: 20120612
  2. PREDNISONE (PREDNISONE) (PREDNISONE) [Concomitant]
  3. VAGIFEM (ESTRADIOL) (ESTRADIOL) [Concomitant]
  4. AMBIEN (ZOLPIDEM TARTRATE) (ZOLPIDEM TARTRATE) [Concomitant]
  5. MACROBID (NITROFURANTOIN) (NITROFURANTOIN) [Concomitant]
  6. CELEXA (CITALOPRAM HYDROBROMIDE) (CITALOPRAM HYDROBROMIDE) [Concomitant]
  7. RESTASIS (CICLOSPORIN) (CICLOSPORIN) [Concomitant]
  8. DITROPAN (OXYBUTYNIN HYDROCHLORIDE) (OXYBUTYNIN HYDROCHLORIDE) [Concomitant]
  9. VICODIN ES (VICODIN) )PARACETAMOL, HYDROCODONE BITARTRATE) [Concomitant]
  10. SOMA (CARISOPRODOL) (CARISOPRODOL) [Concomitant]
  11. LYRICA (PREGABALIN) (PREGABALIN) [Concomitant]
  12. ZOFRAN (ONDANSETRON) (ONDANSETRON) [Concomitant]
  13. KLONOPIN [Concomitant]

REACTIONS (6)
  - Constipation [None]
  - Fatigue [None]
  - Paraesthesia oral [None]
  - Pruritus [None]
  - Headache [None]
  - Nausea [None]
